FAERS Safety Report 8582434 (Version 5)
Quarter: 2013Q2

REPORT INFORMATION
  Report Type: Spontaneous
  Country: US (occurrence: US)
  Receive Date: 20120529
  Receipt Date: 20120709
  Transmission Date: 20140414
  Serious: Yes (Hospitalization)
  Sender: FDA-Public Use
  Company Number: PHHY2011US30369

PATIENT
  Age: 63 Year
  Sex: Female

DRUGS (5)
  1. GLEEVEC [Suspect]
     Indication: CHRONIC MYELOID LEUKAEMIA
     Dosage: 400 MG, DAILY
     Route: 048
     Dates: start: 20110311
  2. TENORMINE [Concomitant]
     Dosage: 75 MG, (50MG AM/ 25 MG PM)
     Route: 048
  3. SYNTHROID [Concomitant]
     Dosage: 112 UG, UNK
     Route: 048
  4. KCL [Concomitant]
     Dosage: 20 MEQ, UNK
     Route: 048
  5. ALLOPURINOL [Concomitant]
     Dosage: 300 MG, UNK
     Route: 048

REACTIONS (8)
  - Atrial fibrillation [Recovered/Resolved]
  - Cardiac disorder [Unknown]
  - Trigger finger [Unknown]
  - Muscle spasms [Recovered/Resolved]
  - Bone pain [Unknown]
  - Blood pressure increased [Unknown]
  - Rash macular [Unknown]
  - Contusion [Unknown]
